FAERS Safety Report 15225880 (Version 5)
Quarter: 2018Q3

REPORT INFORMATION
  Report Type: Spontaneous
  Country: US (occurrence: US)
  Receive Date: 20180801
  Receipt Date: 20180913
  Transmission Date: 20181010
  Serious: No
  Sender: FDA-Public Use
  Company Number: US-PFIZER INC-2018307067

PATIENT
  Sex: Female

DRUGS (2)
  1. HYDROCORTISONE. [Suspect]
     Active Substance: HYDROCORTISONE
     Indication: ADDISON^S DISEASE
     Dosage: 2.5 MG, UNK (AFTERNOON)
  2. HYDROCORTISONE. [Suspect]
     Active Substance: HYDROCORTISONE
     Dosage: 2.5 MG, UNK (AFTERNOON)

REACTIONS (3)
  - Drug ineffective [Unknown]
  - Palpitations [Not Recovered/Not Resolved]
  - Asthenia [Unknown]
